FAERS Safety Report 8375768-2 (Version None)
Quarter: 2012Q1

REPORT INFORMATION
  Report Type: 
  Country: None (occurrence: None)
  Receive Date: 20120323
  Receipt Date: 20111109
  Transmission Date: 20120608
  Serious: Yes (Death)
  Sender: FDA-Public Use
  Company Number: 163-21880-08040702

PATIENT
  Age: 86 Year

DRUGS (1)
  1. REVLIMID [Suspect]
     Indication: CHRONIC LYMPHOCYTIC LEUKAEMIA
     Dosage: 10 MG DAILY WITH DOSE ESCALATION UP TO 25 MG DAILY., PO
     Route: 048

REACTIONS (1)
  - PNEUMONIA [None]
